FAERS Safety Report 21707296 (Version 1)
Quarter: 2022Q4

REPORT INFORMATION
  Report Type: Report from Study
  Country: US (occurrence: US)
  Receive Date: 20221209
  Receipt Date: 20221209
  Transmission Date: 20230113
  Serious: No
  Sender: FDA-Public Use
  Company Number: US-ABBVIE-22K-163-4380574-00

PATIENT
  Age: 42 Year
  Sex: Female

DRUGS (4)
  1. HUMIRA [Suspect]
     Active Substance: ADALIMUMAB
     Indication: Crohn^s disease
     Dosage: DAY 1
     Route: 058
  2. HUMIRA [Suspect]
     Active Substance: ADALIMUMAB
     Dosage: DAY 15
     Route: 058
  3. HUMIRA [Suspect]
     Active Substance: ADALIMUMAB
     Dosage: DAY 29 INJECT 1 PEN EVERY 14 DAYS
     Route: 058
     Dates: start: 20211028
  4. HUMIRA [Suspect]
     Active Substance: ADALIMUMAB

REACTIONS (11)
  - Fatigue [Unknown]
  - Loss of personal independence in daily activities [Not Recovered/Not Resolved]
  - Gastrointestinal sounds abnormal [Unknown]
  - Off label use [Unknown]
  - Decreased appetite [Unknown]
  - Insomnia [Not Recovered/Not Resolved]
  - Abdominal distension [Unknown]
  - Anxiety [Not Recovered/Not Resolved]
  - Depressed mood [Not Recovered/Not Resolved]
  - Abdominal pain [Unknown]
  - Arthralgia [Unknown]

NARRATIVE: CASE EVENT DATE: 20220721
